FAERS Safety Report 5525398-2 (Version None)
Quarter: 2007Q4

REPORT INFORMATION
  Report Type: 
  Country: None (occurrence: None)
  Receive Date: 20071126
  Receipt Date: 20071115
  Transmission Date: 20080405
  Serious: Yes (Other)
  Sender: FDA-Public Use
  Company Number: US-JNJFOC-20071106775

PATIENT
  Sex: Female
  Weight: 44 kg

DRUGS (3)
  1. DURAGESIC-100 [Suspect]
     Indication: PAIN
     Route: 062
  2. NEURONTIN [Concomitant]
     Indication: NEURALGIA
     Route: 048
  3. UNSPECIFIED PAIN PATCH [Concomitant]
     Indication: NEURALGIA
     Route: 062

REACTIONS (4)
  - APPLICATION SITE EXCORIATION [None]
  - APPLICATION SITE IRRITATION [None]
  - BREAKTHROUGH PAIN [None]
  - CHRONIC OBSTRUCTIVE PULMONARY DISEASE [None]
